FAERS Safety Report 6157618-8 (Version None)
Quarter: 2009Q2

REPORT INFORMATION
  Report Type: 
  Country: None (occurrence: None)
  Receive Date: 20090414
  Receipt Date: 20090414
  Transmission Date: 20091009
  Serious: Yes (Death)
  Sender: FDA-Public Use
  Company Number: None

PATIENT
  Age: 53 Year
  Sex: Male
  Weight: 68.0396 kg

DRUGS (2)
  1. SULFASALAZINE [Suspect]
     Indication: COLITIS ULCERATIVE
     Dosage: 2000 MILLIGRAM BID PO
     Route: 048
     Dates: start: 20081122, end: 20081210
  2. SULFASALAZINE [Suspect]
     Indication: COLITIS ULCERATIVE
     Dosage: 2000 MILLIGRAM BID PO
     Route: 048
     Dates: start: 20090114, end: 20090203

REACTIONS (8)
  - BONE MARROW TOXICITY [None]
  - CHOLANGITIS SCLEROSING [None]
  - COLITIS ULCERATIVE [None]
  - DISEASE RECURRENCE [None]
  - HEPATIC FAILURE [None]
  - HEPATOTOXICITY [None]
  - PANCYTOPENIA [None]
  - TREATMENT NONCOMPLIANCE [None]
